FAERS Safety Report 9464615 (Version 1)
Quarter: 2013Q3

REPORT INFORMATION
  Report Type: Spontaneous
  Country: US (occurrence: US)
  Receive Date: 20130819
  Receipt Date: 20130819
  Transmission Date: 20140515
  Serious: No
  Sender: FDA-Public Use
  Company Number: US-PFIZER INC-2013238091

PATIENT
  Sex: Male

DRUGS (2)
  1. DILANTIN-125 [Suspect]
     Indication: BRAIN INJURY
     Dosage: UNK
  2. ALCOHOL [Interacting]

REACTIONS (3)
  - Off label use [Unknown]
  - Alcohol interaction [Unknown]
  - Aggression [Unknown]
